FAERS Safety Report 17680631 (Version 1)
Quarter: 2020Q2

REPORT INFORMATION
  Report Type: Report from Study
  Country: IT (occurrence: IT)
  Receive Date: 20200417
  Receipt Date: 20200417
  Transmission Date: 20200714
  Serious: Yes (Other)
  Sender: FDA-Public Use
  Company Number: IT-TEVA-2019-IT-1064788

PATIENT
  Age: 78 Year
  Sex: Male
  Weight: 79 kg

DRUGS (1)
  1. CARBOPLATIN. [Suspect]
     Active Substance: CARBOPLATIN
     Indication: NON-SMALL CELL LUNG CANCER
     Route: 042

REACTIONS (2)
  - Extravasation [Recovering/Resolving]
  - Vascular access site swelling [Recovering/Resolving]

NARRATIVE: CASE EVENT DATE: 20190208
